FAERS Safety Report 6958159-8 (Version None)
Quarter: 2010Q3

REPORT INFORMATION
  Report Type: 
  Country: None (occurrence: None)
  Receive Date: 20100827
  Receipt Date: 20100827
  Transmission Date: 20110219
  Serious: No
  Sender: FDA-Public Use
  Company Number: None

PATIENT
  Age: 70 Year
  Sex: Female
  Weight: 68.0396 kg

DRUGS (2)
  1. AROMASIN [Suspect]
     Indication: BREAST CANCER
     Dosage: 25MG 1 DAILY
     Dates: start: 20091001, end: 20091130
  2. AROMASIN [Suspect]
     Indication: POSTOPERATIVE CARE
     Dosage: 25MG 1 DAILY
     Dates: start: 20091001, end: 20091130

REACTIONS (1)
  - VERTIGO POSITIONAL [None]
